FAERS Safety Report 19369580 (Version 5)
Quarter: 2021Q3

REPORT INFORMATION
  Report Type: Spontaneous
  Country: US (occurrence: US)
  Receive Date: 20210603
  Receipt Date: 20210913
  Transmission Date: 20211014
  Serious: No
  Sender: FDA-Public Use
  Company Number: US-GLAXOSMITHKLINE-US2021AMR117768

PATIENT
  Age: 77 Year
  Sex: Female

DRUGS (4)
  1. ZEJULA [Suspect]
     Active Substance: NIRAPARIB
     Dosage: 200 MG, QD
  2. ZEJULA [Suspect]
     Active Substance: NIRAPARIB
     Indication: OVARIAN CANCER
     Dosage: 300 MG, QD
     Dates: start: 20210601
  3. ZEJULA [Suspect]
     Active Substance: NIRAPARIB
     Dosage: 300 MG, QD
     Route: 048
     Dates: start: 20210621
  4. ZEJULA [Suspect]
     Active Substance: NIRAPARIB
     Dosage: UNK (MODIFIED DOSE)

REACTIONS (11)
  - Insomnia [Unknown]
  - Fatigue [Not Recovered/Not Resolved]
  - Anxiety [Unknown]
  - Dry mouth [Unknown]
  - Asthenia [Unknown]
  - Myalgia [Unknown]
  - Platelet count decreased [Not Recovered/Not Resolved]
  - Epistaxis [Unknown]
  - Constipation [Unknown]
  - Bowel movement irregularity [Unknown]
  - Decreased activity [Unknown]

NARRATIVE: CASE EVENT DATE: 202106
